FAERS Safety Report 14151405 (Version 3)
Quarter: 2018Q1

REPORT INFORMATION
  Report Type: Spontaneous
  Country: US (occurrence: US)
  Receive Date: 20171102
  Receipt Date: 20180314
  Transmission Date: 20180508
  Serious: No
  Sender: FDA-Public Use
  Company Number: US-PFIZER INC-2017469602

PATIENT
  Age: 66 Year
  Sex: Female

DRUGS (25)
  1. PERCOCET [Concomitant]
     Active Substance: ACETAMINOPHEN\OXYCODONE HYDROCHLORIDE
     Dosage: UNK [(OXYCODONE HYDROCHLORIDE 5 MG, PARACETAMOL 325 MG)]
  2. SUTENT [Suspect]
     Active Substance: SUNITINIB MALATE
     Indication: DENTAL CARIES
     Dosage: 50 MG, CYCLIC (TOOK 1 CAPSULE BY MOUTH DAILY FOR 14 DAYS ON 1 WEEKOFF)
     Route: 048
     Dates: start: 20170921, end: 20180308
  3. CALTRATE 600+D [Concomitant]
     Dosage: UNK (600-800 MG-UNIT TABS)
  4. PRINZIDE [Concomitant]
     Active Substance: HYDROCHLOROTHIAZIDE\LISINOPRIL
     Dosage: UNK [(HYDROCHLOROTHIAZIDE 12.5 MG, LISINOPRIL DIHYDRATE 20 MG)]
  5. ZESTORETIC [Concomitant]
     Active Substance: HYDROCHLOROTHIAZIDE\LISINOPRIL
     Dosage: UNK [(HYDROCHLOROTHIAZIDE 12.5 MG/ LISINOPRIL 20 MG)]
  6. ASPIRIN. [Concomitant]
     Active Substance: ASPIRIN
     Dosage: 81 MG, UNK
  7. ERGOCALCIFEROL. [Concomitant]
     Active Substance: ERGOCALCIFEROL
     Dosage: 50000 IU, UNK
  8. CARVEDILOL. [Concomitant]
     Active Substance: CARVEDILOL
     Dosage: 25 MG, UNK
  9. CLONIDINE HCL [Concomitant]
     Active Substance: CLONIDINE HYDROCHLORIDE
     Dosage: 0.1 MG, UNK
  10. LISINOPRIL AND HYDROCHLOROTHIAZIDE [Concomitant]
     Active Substance: HYDROCHLOROTHIAZIDE\LISINOPRIL
     Dosage: UNK [HYDROCHLOROTHIAZIDE 12.5 MG/LISINOPRIL 20 MG]
  11. CATAPRES [Concomitant]
     Active Substance: CLONIDINE HYDROCHLORIDE
     Dosage: 0.1 MG, UNK
  12. FERROUS SULFATE. [Concomitant]
     Active Substance: FERROUS SULFATE
     Dosage: 325 MG, UNK
  13. PRILOSEC [Concomitant]
     Active Substance: OMEPRAZOLE MAGNESIUM
     Dosage: 20 MG, UNK
  14. K-DUR [Concomitant]
     Active Substance: POTASSIUM CHLORIDE
     Dosage: 10 MEQ, UNK
  15. PHENERGAN [Concomitant]
     Active Substance: PROMETHAZINE HYDROCHLORIDE
     Dosage: 25 MG, UNK
  16. CALTRATE [Concomitant]
     Active Substance: CALCIUM CARBONATE
     Dosage: UNK (600-800M)
  17. BIDIL [Concomitant]
     Active Substance: HYDRALAZINE HYDROCHLORIDE\ISOSORBIDE DINITRATE
     Dosage: UNK [HYDRALAZINE HYDROCHLORIDE 37.5 MG/ISOSORBIDE DINITRATE 20 MG]
  18. VITAMIN D3 [Concomitant]
     Active Substance: CHOLECALCIFEROL
     Dosage: UNK
     Route: 048
  19. ZOFRAN [Concomitant]
     Active Substance: ONDANSETRON HYDROCHLORIDE
     Dosage: 8 MG, UNK
  20. DIPHENHYDRAMINE W/LIDOCAINE/NYSTATIN [Concomitant]
     Indication: STOMATITIS
     Dosage: UNK
  21. SUTENT [Suspect]
     Active Substance: SUNITINIB MALATE
     Indication: METASTATIC RENAL CELL CARCINOMA
     Dosage: 50 MG, CYCLIC (DAILY FOR 14 DAYS ON 7 DAYS OFF)
     Route: 048
     Dates: start: 20170925
  22. OMEPRAZOLE. [Concomitant]
     Active Substance: OMEPRAZOLE
     Dosage: 20 MG, UNK
  23. COREG [Concomitant]
     Active Substance: CARVEDILOL
     Dosage: 25 MG, UNK
  24. ZYRTEC [Concomitant]
     Active Substance: CETIRIZINE HYDROCHLORIDE
     Dosage: 10 MG, UNK
  25. LANTUS [Concomitant]
     Active Substance: INSULIN GLARGINE
     Dosage: UNK

REACTIONS (7)
  - Red blood cell count increased [Unknown]
  - Red cell distribution width increased [Unknown]
  - Tongue discomfort [Not Recovered/Not Resolved]
  - Mean cell volume abnormal [Unknown]
  - Diarrhoea [Unknown]
  - Neoplasm progression [Unknown]
  - Creatinine urine increased [Unknown]

NARRATIVE: CASE EVENT DATE: 20170925
